FAERS Safety Report 16414767 (Version 3)
Quarter: 2021Q4

REPORT INFORMATION
  Report Type: Spontaneous
  Country: US (occurrence: US)
  Receive Date: 20190611
  Receipt Date: 20211130
  Transmission Date: 20220303
  Serious: Yes (Other)
  Sender: FDA-Public Use
  Company Number: US-PFIZER INC-2019239696

PATIENT
  Age: 77 Year
  Sex: Female

DRUGS (1)
  1. PREMARIN [Suspect]
     Active Substance: ESTROGENS, CONJUGATED
     Dosage: 0.625 MG, UNK
     Route: 067

REACTIONS (6)
  - Dementia [Unknown]
  - Illness [Unknown]
  - Fall [Unknown]
  - Back disorder [Unknown]
  - Infection [Unknown]
  - Joint injury [Unknown]
